FAERS Safety Report 16664187 (Version 1)
Quarter: 2019Q3

REPORT INFORMATION
  Report Type: Spontaneous
  Country: US (occurrence: US)
  Receive Date: 20190802
  Receipt Date: 20190802
  Transmission Date: 20191004
  Serious: Yes (Other)
  Sender: FDA-Public Use
  Company Number: US-MYLANLABS-2019M1072566

PATIENT
  Age: 33 Year
  Sex: Female

DRUGS (2)
  1. HEPARIN [Suspect]
     Active Substance: HEPARIN SODIUM
     Indication: SUPERIOR SAGITTAL SINUS THROMBOSIS
     Dosage: UNK
     Route: 042
  2. HEPARIN [Suspect]
     Active Substance: HEPARIN SODIUM
     Indication: TRANSVERSE SINUS THROMBOSIS

REACTIONS (1)
  - Drug ineffective [Recovered/Resolved]
